FAERS Safety Report 9539081 (Version 1)
Quarter: 2013Q3

REPORT INFORMATION
  Report Type: Spontaneous
  Country: BR (occurrence: BR)
  Receive Date: 20130920
  Receipt Date: 20130920
  Transmission Date: 20140515
  Serious: Yes (Other)
  Sender: FDA-Public Use
  Company Number: BR-PFIZER INC-2013266873

PATIENT
  Sex: Female

DRUGS (6)
  1. CELEBRA [Suspect]
     Dosage: UNK
     Dates: start: 20130621
  2. TRILEPTAL [Concomitant]
     Indication: CONVULSION
     Dosage: UNK
     Dates: start: 2006
  3. DONAREN [Concomitant]
     Indication: DEPRESSION
     Dosage: UNK
     Dates: start: 2007
  4. ATENOLOL [Concomitant]
     Indication: HYPERTENSION
     Dosage: UNK
     Dates: start: 2007
  5. FOLIC ACID [Concomitant]
  6. ARTROLIVE [Concomitant]
     Indication: OSTEOARTHRITIS

REACTIONS (3)
  - Eye haemorrhage [Unknown]
  - Ocular vascular disorder [Recovering/Resolving]
  - Visual acuity reduced [Not Recovered/Not Resolved]
